FAERS Safety Report 8099334-1 (Version None)
Quarter: 2012Q1

REPORT INFORMATION
  Report Type: 
  Country: None (occurrence: None)
  Receive Date: 20120131
  Receipt Date: 20120123
  Transmission Date: 20120608
  Serious: Yes (Death)
  Sender: FDA-Public Use
  Company Number: FR-PFIZER INC-2010066525

PATIENT
  Age: 77 Year
  Sex: Male

DRUGS (8)
  1. BECLOMETASONE [Concomitant]
     Indication: ASTHMA
     Dosage: AS NEEDED
     Route: 055
  2. SUNITINIB MALATE [Suspect]
     Indication: PROSTATE CANCER
     Dosage: 37.5 MG, 1X/DAY
     Route: 048
     Dates: start: 20100412, end: 20100520
  3. PREDNISONE TAB [Suspect]
     Indication: PROSTATE CANCER
     Dosage: 5 MG, 2X/DAY
     Dates: start: 20100412, end: 20100520
  4. BISOPROLOL [Concomitant]
     Indication: PROPHYLAXIS
     Dosage: 1X/DAY
     Route: 048
  5. RAMIPRIL [Concomitant]
     Indication: BLOOD PRESSURE INCREASED
     Dosage: 1X/DAY
     Route: 048
  6. ACETYLSALICYLIC ACID [Concomitant]
     Indication: PROPHYLAXIS
     Dosage: 1X/DAY
     Route: 048
  7. NICORANDIL [Concomitant]
     Indication: PROPHYLAXIS
     Dosage: 1X/DAY
     Route: 048
  8. LEUPRORELIN [Concomitant]
     Indication: PROSTATE CANCER
     Dosage: 40 MG EVERY 6 MONTHS
     Route: 058
     Dates: start: 20100303

REACTIONS (1)
  - GENERAL PHYSICAL HEALTH DETERIORATION [None]
